FAERS Safety Report 7212457-1 (Version None)
Quarter: 2011Q1

REPORT INFORMATION
  Report Type: 
  Country: None (occurrence: None)
  Receive Date: 20110106
  Receipt Date: 20101231
  Transmission Date: 20110831
  Serious: Yes (Death)
  Sender: FDA-Public Use
  Company Number: US-PFIZER INC-2011000537

PATIENT
  Age: 21 Year
  Sex: Male

DRUGS (6)
  1. AMLODIPINE BESYLATE [Suspect]
  2. CLONAZEPAM [Suspect]
  3. METOPROLOL [Suspect]
  4. ACETAMINOPHEN [Suspect]
  5. CITALOPRAM [Suspect]
  6. DIAZEPAM [Suspect]

REACTIONS (3)
  - CARDIAC ARREST [None]
  - RESPIRATORY ARREST [None]
  - COMPLETED SUICIDE [None]
